FAERS Safety Report 9016069 (Version 1)
Quarter: 2013Q1

REPORT INFORMATION
  Report Type: Spontaneous
  Country: US (occurrence: US)
  Receive Date: 20130116
  Receipt Date: 20130116
  Transmission Date: 20140127
  Serious: No
  Sender: FDA-Public Use
  Company Number: US-TEVA-380562USA

PATIENT
  Sex: Female
  Weight: 64.47 kg

DRUGS (3)
  1. QNASL [Suspect]
     Indication: HYPERSENSITIVITY
     Dosage: 80 MICROGRAM DAILY;
     Route: 055
     Dates: end: 201301
  2. HUMIRA [Concomitant]
  3. SINGULAIR [Concomitant]

REACTIONS (2)
  - Dysuria [Not Recovered/Not Resolved]
  - Cystitis interstitial [Not Recovered/Not Resolved]
